FAERS Safety Report 11167964 (Version 1)
Quarter: 2015Q2

REPORT INFORMATION
  Report Type: Spontaneous
  Country: US (occurrence: None)
  Receive Date: 20150604
  Receipt Date: 20150604
  Transmission Date: 20150821
  Serious: Yes (Other)
  Sender: FDA-Public Use
  Company Number: None

PATIENT
  Age: 13 Year
  Sex: Male
  Weight: 28.58 kg

DRUGS (2)
  1. SERTRALINE [Suspect]
     Active Substance: SERTRALINE HYDROCHLORIDE
     Indication: MAJOR DEPRESSION
     Dosage: 2 TO 3 WEEKS
     Route: 048
     Dates: start: 201503
  2. DAYTRANA [Concomitant]
     Active Substance: METHYLPHENIDATE

REACTIONS (2)
  - Suicidal ideation [None]
  - Product substitution issue [None]

NARRATIVE: CASE EVENT DATE: 20110317
